FAERS Safety Report 20720322 (Version 1)
Quarter: 2022Q2

REPORT INFORMATION
  Report Type: Spontaneous
  Country: US (occurrence: US)
  Receive Date: 20220418
  Receipt Date: 20220418
  Transmission Date: 20220721
  Serious: No
  Sender: FDA-Public Use
  Company Number: US-NOVARTISTESTPH-NVSC2022US085933

PATIENT
  Sex: Male

DRUGS (1)
  1. PROMACTA [Suspect]
     Active Substance: ELTROMBOPAG OLAMINE
     Indication: Asthma
     Dosage: 75 MG, QD
     Route: 048
     Dates: start: 202203

REACTIONS (3)
  - Nausea [Unknown]
  - Dizziness [Unknown]
  - Product use in unapproved indication [Unknown]
